FAERS Safety Report 17282949 (Version 1)
Quarter: 2020Q1

REPORT INFORMATION
  Report Type: Spontaneous
  Country: US (occurrence: US)
  Receive Date: 20200117
  Receipt Date: 20200117
  Transmission Date: 20200409
  Serious: Yes (Other)
  Sender: FDA-Public Use
  Company Number: None

PATIENT
  Age: 62 Year
  Sex: Female
  Weight: 65.7 kg

DRUGS (2)
  1. CYTOMEL [Concomitant]
     Active Substance: LIOTHYRONINE SODIUM
  2. RINVOQ [Suspect]
     Active Substance: UPADACITINIB
     Indication: RHEUMATOID ARTHRITIS
     Dosage: ?          QUANTITY:1 TABLET(S);?
     Dates: start: 20191031, end: 20200104

REACTIONS (7)
  - Nausea [None]
  - Gastrointestinal tract irritation [None]
  - Hypophagia [None]
  - Flatulence [None]
  - Gastrointestinal mucosal disorder [None]
  - Impaired work ability [None]
  - Weight decreased [None]

NARRATIVE: CASE EVENT DATE: 20200103
